FAERS Safety Report 9057337 (Version 1)
Quarter: 2013Q1

REPORT INFORMATION
  Report Type: Spontaneous
  Country: IT (occurrence: IT)
  Receive Date: 20130204
  Receipt Date: 20130204
  Transmission Date: 20140127
  Serious: Yes (Hospitalization)
  Sender: FDA-Public Use
  Company Number: IT-PFIZER INC-2013033287

PATIENT
  Age: 6 Year
  Sex: Male

DRUGS (1)
  1. IBUPROFEN [Suspect]
     Indication: PYREXIA
     Dosage: 5 ML, 1X/DAY
     Route: 048
     Dates: start: 20130111, end: 20130112

REACTIONS (5)
  - Abdominal pain upper [Recovering/Resolving]
  - Haematemesis [Recovering/Resolving]
  - Faeces discoloured [Recovering/Resolving]
  - Melaena [Recovering/Resolving]
  - Haemoglobin decreased [Unknown]
